FAERS Safety Report 18984113 (Version 1)
Quarter: 2021Q1

REPORT INFORMATION
  Report Type: Spontaneous
  Country: IT (occurrence: IT)
  Receive Date: 20210309
  Receipt Date: 20210309
  Transmission Date: 20210420
  Serious: Yes (Other)
  Sender: FDA-Public Use
  Company Number: IT-BAYER-2021-093577

PATIENT
  Age: 71 Year
  Sex: Male

DRUGS (1)
  1. NEXAVAR [Suspect]
     Active Substance: SORAFENIB
     Dosage: 2 CAPSULES AND 3 CAPSULES EVERY OTHER DAY

REACTIONS (4)
  - Toxicity to various agents [None]
  - Alpha 1 foetoprotein increased [None]
  - Disease progression [None]
  - Palmar-plantar erythrodysaesthesia syndrome [None]
